FAERS Safety Report 7706493-6 (Version None)
Quarter: 2011Q3

REPORT INFORMATION
  Report Type: 
  Country: None (occurrence: None)
  Receive Date: 20110802
  Receipt Date: 20110422
  Transmission Date: 20111222
  Serious: Yes (Other)
  Sender: FDA-Public Use
  Company Number: AUR-APL-2011-01460

PATIENT
  Age: 42 Year
  Sex: Female
  Weight: 109 kg

DRUGS (2)
  1. LEVOTHYROXINE SODIUM [Concomitant]
  2. RISPERIDONE [Suspect]
     Indication: SCHIZOAFFECTIVE DISORDER

REACTIONS (1)
  - TARDIVE DYSKINESIA [None]
